FAERS Safety Report 6420056-4 (Version None)
Quarter: 2009Q4

REPORT INFORMATION
  Report Type: 
  Country: None (occurrence: None)
  Receive Date: 20091029
  Receipt Date: 20091023
  Transmission Date: 20100525
  Serious: Yes (Death, Other)
  Sender: FDA-Public Use
  Company Number: JP-WYE-H11706709

PATIENT

DRUGS (1)
  1. ANCARON [Suspect]
     Dosage: NOT PROVIDED
     Route: 048

REACTIONS (2)
  - DEATH [None]
  - PNEUMONIA [None]
